FAERS Safety Report 11241338 (Version 1)
Quarter: 2015Q3

REPORT INFORMATION
  Report Type: Spontaneous
  Country: JP (occurrence: JP)
  Receive Date: 20150706
  Receipt Date: 20150706
  Transmission Date: 20151125
  Serious: Yes (Hospitalization, Other)
  Sender: FDA-Public Use
  Company Number: JP-BAYER-2014-011194

PATIENT
  Age: 49 Year
  Sex: Female

DRUGS (1)
  1. YAZ [Suspect]
     Active Substance: DROSPIRENONE\ETHINYL ESTRADIOL
     Indication: DYSMENORRHOEA
     Dosage: UNK
     Route: 048
     Dates: end: 201305

REACTIONS (11)
  - Vomiting [Recovered/Resolved]
  - Diplopia [None]
  - Brain oedema [Recovered/Resolved]
  - Dizziness [Recovered/Resolved]
  - Palpitations [Not Recovered/Not Resolved]
  - Blood pressure increased [None]
  - Headache [Recovered/Resolved]
  - Cerebral venous thrombosis [Recovered/Resolved]
  - Papilloedema [None]
  - Visual impairment [None]
  - Dyspnoea [Not Recovered/Not Resolved]

NARRATIVE: CASE EVENT DATE: 201304
